FAERS Safety Report 7122030-1 (Version None)
Quarter: 2010Q4

REPORT INFORMATION
  Report Type: 
  Country: None (occurrence: None)
  Receive Date: 20101122
  Receipt Date: 20101122
  Transmission Date: 20110411
  Serious: Yes (Other)
  Sender: FDA-Public Use
  Company Number: None

PATIENT
  Sex: Female
  Weight: 79.3795 kg

DRUGS (1)
  1. FENTANYL-100 [Suspect]
     Indication: IMPAIRED GASTRIC EMPTYING
     Dosage: ONE PATCH EVERY 72 HOURS CUTANEOUS
     Route: 003
     Dates: start: 20100923, end: 20101102

REACTIONS (4)
  - CHEST PAIN [None]
  - PRODUCT ADHESION ISSUE [None]
  - PRODUCT QUALITY ISSUE [None]
  - PYREXIA [None]
